FAERS Safety Report 10644985 (Version 1)
Quarter: 2014Q4

REPORT INFORMATION
  Report Type: Spontaneous
  Country: US (occurrence: None)
  Receive Date: 20141210
  Receipt Date: 20141210
  Transmission Date: 20150529
  Serious: Yes (Other)
  Sender: FDA-Public Use
  Company Number: None

PATIENT
  Age: 72 Year
  Sex: Female
  Weight: 90.72 kg

DRUGS (1)
  1. XARELTO [Suspect]
     Active Substance: RIVAROXABAN
     Indication: PULMONARY EMBOLISM
     Dosage: 20MGM, ONCE DAILY, TAKEN BY MOUTH
     Route: 048

REACTIONS (5)
  - Peripheral swelling [None]
  - Skin discolouration [None]
  - Fall [None]
  - Joint injury [None]
  - Contusion [None]

NARRATIVE: CASE EVENT DATE: 20141203
